FAERS Safety Report 7890397-2 (Version None)
Quarter: 2011Q4

REPORT INFORMATION
  Report Type: 
  Country: None (occurrence: None)
  Receive Date: 20111103
  Receipt Date: 20110720
  Transmission Date: 20120403
  Serious: No
  Sender: FDA-Public Use
  Company Number: US-AMGEN-USASP2011030422

PATIENT
  Age: 29 Year
  Sex: Female

DRUGS (1)
  1. ENBREL [Suspect]
     Indication: HIDRADENITIS
     Dosage: 50 MG, 2 TIMES/WK
     Route: 058
     Dates: start: 20110531

REACTIONS (4)
  - SOMNOLENCE [None]
  - MUSCLE SPASMS [None]
  - MUSCLE TIGHTNESS [None]
  - FATIGUE [None]
